FAERS Safety Report 4778065-7 (Version None)
Quarter: 2005Q3

REPORT INFORMATION
  Report Type: 
  Country: None (occurrence: None)
  Receive Date: 20050922
  Receipt Date: 20050913
  Transmission Date: 20060218
  Serious: Yes (Death)
  Sender: FDA-Public Use
  Company Number: 200511924BWH

PATIENT
  Age: 79 Year
  Sex: Male
  Weight: 127.8 kg

DRUGS (14)
  1. TRASYLOL [Suspect]
     Indication: CORONARY ARTERY SURGERY
     Dosage: 2000000 KIU, ONCE, INTRAVENOUS
     Route: 042
     Dates: start: 20050826
  2. TRASYLOL [Suspect]
     Indication: VENTRICULAR SEPTAL DEFECT
     Dosage: 2000000 KIU, ONCE, INTRAVENOUS
     Route: 042
     Dates: start: 20050826
  3. HEPARIN [Concomitant]
  4. PLASM-LYTE [Concomitant]
  5. ALBUMIN HUMAN ^BERNA^ [Concomitant]
  6. PLEGISOL [Concomitant]
  7. NORMOSOL R [Concomitant]
  8. DOPAMINE [Concomitant]
  9. NAHCO3 [Concomitant]
  10. NEOSYNEPHRINE [Concomitant]
  11. MGSO [Concomitant]
  12. PROTAMINE [Concomitant]
  13. PLAVIX [Concomitant]
  14. ASPIRIN [Concomitant]

REACTIONS (3)
  - CEREBRAL INFARCTION [None]
  - CEREBROVASCULAR ACCIDENT [None]
  - COMA [None]
